FAERS Safety Report 15631330 (Version 1)
Quarter: 2018Q4

REPORT INFORMATION
  Report Type: Spontaneous
  Country: US (occurrence: US)
  Receive Date: 20181119
  Receipt Date: 20181119
  Transmission Date: 20190205
  Serious: Yes (Other)
  Sender: FDA-Public Use
  Company Number: US-BRISTOL-MYERS SQUIBB COMPANY-BMS-2018-106033

PATIENT
  Age: 59 Year
  Sex: Male

DRUGS (6)
  1. HYDROXYUREA. [Suspect]
     Active Substance: HYDROXYUREA
     Indication: LEUKAEMIA
     Route: 065
  2. VIAGRA [Suspect]
     Active Substance: SILDENAFIL CITRATE
     Indication: HAEMOCHROMATOSIS
     Dosage: 0.5 TAB, QD
     Route: 048
  3. HYDROXYUREA. [Suspect]
     Active Substance: HYDROXYUREA
     Indication: HAEMOCHROMATOSIS
     Dosage: 500 MG, BID
     Route: 048
  4. VIAGRA [Suspect]
     Active Substance: SILDENAFIL CITRATE
     Indication: LEUKAEMIA
     Route: 065
  5. HYDROXYUREA. [Suspect]
     Active Substance: HYDROXYUREA
     Indication: LYMPHOMA
     Route: 065
  6. VIAGRA [Suspect]
     Active Substance: SILDENAFIL CITRATE
     Indication: LYMPHOMA
     Route: 065

REACTIONS (1)
  - Drug ineffective [Unknown]
